FAERS Safety Report 8887773 (Version 2)
Quarter: 2013Q1

REPORT INFORMATION
  Report Type: Spontaneous
  Country: US (occurrence: US)
  Receive Date: 20121106
  Receipt Date: 20130107
  Transmission Date: 20140127
  Serious: No
  Sender: FDA-Public Use
  Company Number: US-ASTRAZENECA-2012SE28193

PATIENT
  Age: 64 Year
  Sex: Female

DRUGS (4)
  1. ATACAND HCT [Suspect]
     Route: 048
  2. TOPROL XL [Suspect]
     Route: 048
  3. NORVASC [Concomitant]
  4. EPIPEN [Concomitant]

REACTIONS (4)
  - Heart rate increased [Unknown]
  - Renal disorder [Unknown]
  - Drug dose omission [Unknown]
  - Off label use [Unknown]
